FAERS Safety Report 10276868 (Version 4)
Quarter: 2014Q4

REPORT INFORMATION
  Report Type: Spontaneous
  Country: US (occurrence: None)
  Receive Date: 20140701
  Receipt Date: 20141007
  Transmission Date: 20150528
  Serious: Yes (Hospitalization, Other)
  Sender: FDA-Public Use
  Company Number: 2014-19609

PATIENT
  Age: 64 Year
  Sex: Female
  Weight: 75.3 kg

DRUGS (7)
  1. LANTUS [Concomitant]
     Active Substance: INSULIN GLARGINE
  2. SYNTHROID [Concomitant]
     Active Substance: LEVOTHYROXINE SODIUM
  3. LAMITRIL (LAMOTRIGINE) [Concomitant]
  4. NAPROXEN (NAPROXEN) [Concomitant]
     Active Substance: NAPROXEN
  5. VEGF TRAP-EYE [Suspect]
     Active Substance: AFLIBERCEPT
     Indication: DIABETIC RETINAL OEDEMA
     Route: 031
     Dates: start: 20111011
  6. IBUPROFEN (IBUPROFEN) [Concomitant]
     Active Substance: IBUPROFEN
  7. JANUVIA [Concomitant]
     Active Substance: SITAGLIPTIN PHOSPHATE

REACTIONS (13)
  - Left ventricular dysfunction [None]
  - Diastolic dysfunction [None]
  - Blood pressure systolic increased [None]
  - Haemoglobin decreased [None]
  - Arteriosclerosis coronary artery [None]
  - Blood cholesterol increased [None]
  - Haematocrit decreased [None]
  - Acute myocardial infarction [None]
  - Blood triglycerides increased [None]
  - Aortic valve incompetence [None]
  - Tricuspid valve incompetence [None]
  - High density lipoprotein decreased [None]
  - Coronary artery stenosis [None]

NARRATIVE: CASE EVENT DATE: 20140508
